FAERS Safety Report 8174350-X (Version None)
Quarter: 2012Q1

REPORT INFORMATION
  Report Type: 
  Country: None (occurrence: None)
  Receive Date: 20120229
  Receipt Date: 20120228
  Transmission Date: 20120608
  Serious: Yes (Other)
  Sender: FDA-Public Use
  Company Number: CA-JNJFOC-2007313728

PATIENT
  Age: 58 Year
  Sex: Female
  Weight: 81.65 kg

DRUGS (13)
  1. NICODERM [Suspect]
     Indication: SMOKING CESSATION THERAPY
     Route: 062
     Dates: start: 20070401, end: 20070407
  2. TYLENOL W/ CODEINE [Suspect]
     Route: 065
  3. GLYBURIDE [Concomitant]
     Indication: DIABETES MELLITUS
     Route: 048
     Dates: start: 19970101
  4. ASPIRIN [Concomitant]
     Indication: CARDIAC DISORDER
     Dosage: DAILY DOSE TEXT: UNSPECIFIED
     Route: 065
  5. METAMUCIL-2 [Concomitant]
     Indication: IRRITABLE BOWEL SYNDROME
     Dosage: WITH EACH MEAL
     Route: 065
  6. RAMIPRIL [Concomitant]
     Indication: CARDIAC DISORDER
     Route: 048
     Dates: start: 19920101
  7. TYLENOL-500 [Concomitant]
     Indication: ARTHRITIS
     Route: 065
  8. ACETYLSALICYLIC ACID SRT [Concomitant]
     Indication: GASTRIC DISORDER
     Route: 048
     Dates: start: 19970101
  9. SEROQUEL [Concomitant]
     Indication: NERVOUS SYSTEM DISORDER
     Dosage: AT NIGHT
     Route: 065
  10. CALCIUM [Concomitant]
     Indication: OSTEOPOROSIS
     Route: 065
     Dates: start: 19970101
  11. TYLENOL W/ CODEINE [Suspect]
     Indication: PAIN
     Route: 065
     Dates: start: 20070401, end: 20070407
  12. ALL OTHER THERAPEUTIC PRODUCTS [Concomitant]
     Indication: IRRITABLE BOWEL SYNDROME
     Dosage: WITH EACH MEAL
     Route: 065
  13. ACEBUTOLOL [Concomitant]
     Indication: CARDIAC DISORDER
     Dosage: HALF TABLET
     Route: 048
     Dates: start: 19970101

REACTIONS (11)
  - IRRITABILITY [None]
  - NERVOUSNESS [None]
  - INCORRECT DRUG ADMINISTRATION DURATION [None]
  - CHEST PAIN [None]
  - HALLUCINATION [None]
  - PRESYNCOPE [None]
  - APPLICATION SITE PAIN [None]
  - TREMOR [None]
  - OVERDOSE [None]
  - RIB FRACTURE [None]
  - DYSSTASIA [None]
